FAERS Safety Report 8195652-7 (Version None)
Quarter: 2012Q1

REPORT INFORMATION
  Report Type: 
  Country: None (occurrence: None)
  Receive Date: 20120308
  Receipt Date: 20120228
  Transmission Date: 20120608
  Serious: Yes (Hospitalization)
  Sender: FDA-Public Use
  Company Number: FR-FRI-1000028868

PATIENT
  Sex: Male

DRUGS (2)
  1. MEMANTINE [Suspect]
     Dosage: 20 MG
     Dates: end: 20111229
  2. CEFTRIAXONE [Suspect]
     Dates: start: 20111224, end: 20120105

REACTIONS (3)
  - ASPARTATE AMINOTRANSFERASE INCREASED [None]
  - ALANINE AMINOTRANSFERASE INCREASED [None]
  - GAMMA-GLUTAMYLTRANSFERASE INCREASED [None]
